FAERS Safety Report 10046661 (Version 1)
Quarter: 2014Q1

REPORT INFORMATION
  Report Type: Report from Study
  Country: MX (occurrence: MX)
  Receive Date: 20140331
  Receipt Date: 20140331
  Transmission Date: 20141002
  Serious: Yes (Death)
  Sender: FDA-Public Use
  Company Number: MX-ROCHE-1374230

PATIENT
  Age: 62 Year
  Sex: Male
  Weight: 60 kg

DRUGS (6)
  1. AVASTIN [Suspect]
     Indication: COLON CANCER
     Route: 042
     Dates: start: 20130705, end: 20131122
  2. XELODA [Suspect]
     Indication: COLON CANCER
     Route: 065
  3. OXALIPLATIN [Concomitant]
     Indication: COLON CANCER
  4. 5-FU [Concomitant]
     Indication: COLON CANCER
  5. FOLINIC ACID [Concomitant]
     Indication: COLON CANCER
  6. IRINOTECAN [Concomitant]
     Indication: COLON CANCER

REACTIONS (1)
  - Hypoglycaemia [Fatal]
